FAERS Safety Report 4612396-6 (Version None)
Quarter: 2005Q1

REPORT INFORMATION
  Report Type: 
  Country: None (occurrence: None)
  Receive Date: 20050316
  Receipt Date: 20050307
  Transmission Date: 20050727
  Serious: Yes (Other)
  Sender: FDA-Public Use
  Company Number: US014675

PATIENT
  Age: 41 Year
  Sex: Female

DRUGS (6)
  1. GABITRIL [Suspect]
     Indication: RADICULOPATHY
     Dates: start: 20040701, end: 20040902
  2. GABITRIL [Suspect]
     Indication: RADICULOPATHY
     Dosage: 16 MG BID ORAL
     Route: 048
     Dates: start: 20040903, end: 20040910
  3. EFFEXOR XR [Suspect]
     Dosage: 150 MG BID ORAL
     Route: 048
     Dates: end: 20040910
  4. PROVIGIL [Concomitant]
  5. TIZANADINE [Concomitant]
  6. TEMAZEPAM [Concomitant]

REACTIONS (6)
  - ANXIETY [None]
  - CHEST PAIN [None]
  - CONVULSION [None]
  - HEADACHE [None]
  - NAUSEA [None]
  - SEROTONIN SYNDROME [None]
